FAERS Safety Report 22293649 (Version 2)
Quarter: 2023Q2

REPORT INFORMATION
  Report Type: Report from Study
  Country: US (occurrence: US)
  Receive Date: 20230508
  Receipt Date: 20230519
  Transmission Date: 20230721
  Serious: Yes (Hospitalization)
  Sender: FDA-Public Use
  Company Number: US-GILEAD-2023-0627040

PATIENT
  Sex: Female

DRUGS (3)
  1. AZTREONAM LYSINE [Suspect]
     Active Substance: AZTREONAM LYSINE
     Indication: Infective pulmonary exacerbation of cystic fibrosis
     Dosage: INHALE 1 VIAL BY ALTERA NEBULIZER THREE TIMES A DAY FOR 28 DAYS, ONE MONTH ON, ONE MONTH OFF
     Route: 055
  2. ALBUTEROL SULFATE [Concomitant]
     Active Substance: ALBUTEROL SULFATE
     Dosage: UNK
  3. TRIKAFTA [Concomitant]
     Active Substance: ELEXACAFTOR\IVACAFTOR\TEZACAFTOR
     Dosage: UNK

REACTIONS (1)
  - Maternal exposure during pregnancy [Recovered/Resolved]
